FAERS Safety Report 7889372-3 (Version None)
Quarter: 2011Q4

REPORT INFORMATION
  Report Type: 
  Country: None (occurrence: None)
  Receive Date: 20111103
  Receipt Date: 20111024
  Transmission Date: 20120403
  Serious: Yes (Hospitalization)
  Sender: FDA-Public Use
  Company Number: FR-TEVA-307306ISR

PATIENT
  Age: 64 Year
  Sex: Female

DRUGS (3)
  1. ROPINIROLE [Suspect]
     Indication: PARKINSON'S DISEASE
     Dosage: 6 MILLIGRAM;
  2. FLUINDIONE [Interacting]
     Indication: THROMBOPHLEBITIS
  3. ROPINIROLE [Interacting]
     Dosage: 8 MILLIGRAM;

REACTIONS (4)
  - DEPRESSED LEVEL OF CONSCIOUSNESS [None]
  - HEADACHE [None]
  - HAEMORRHAGE INTRACRANIAL [None]
  - VOMITING [None]
